FAERS Safety Report 8875542 (Version 1)
Quarter: 2012Q4

REPORT INFORMATION
  Report Type: 
  Country: CN (occurrence: CN)
  Receive Date: 20121030
  Receipt Date: 20121030
  Transmission Date: 20130627
  Serious: Yes (Other)
  Sender: FDA-Public Use
  Company Number: CN-JNJFOC-20121015533

PATIENT
  Age: 1 Year

DRUGS (4)
  1. TOPAMAX [Suspect]
     Indication: EPILEPSY
     Route: 048
     Dates: start: 20121016
  2. TOPAMAX [Suspect]
     Indication: EPILEPSY
     Route: 048
     Dates: start: 20121012, end: 20121014
  3. RIBAVIRIN [Concomitant]
     Indication: DIARRHOEA
     Route: 048
  4. SMECTITE [Concomitant]
     Indication: DIARRHOEA
     Route: 048

REACTIONS (5)
  - Saccadic eye movement [Not Recovered/Not Resolved]
  - Tremor [Not Recovered/Not Resolved]
  - Convulsion [Not Recovered/Not Resolved]
  - Drug administered to patient of inappropriate age [Unknown]
  - Diarrhoea [Not Recovered/Not Resolved]
